FAERS Safety Report 5955857-X (Version None)
Quarter: 2008Q4

REPORT INFORMATION
  Report Type: 
  Country: None (occurrence: None)
  Receive Date: 20081113
  Receipt Date: 20081030
  Transmission Date: 20090506
  Serious: Yes (Hospitalization)
  Sender: FDA-Public Use
  Company Number: 2008US002642

PATIENT
  Sex: Male

DRUGS (8)
  1. AMEVIVE [Suspect]
     Indication: PSORIASIS
     Dosage: 15 MG, WEEKLY, INTRAMUSCULAR
     Route: 030
     Dates: start: 20080915, end: 20081006
  2. SALICYLIC ACID [Concomitant]
  3. TOPILENE (BETAMETHASONE DIPROPIONATE) [Concomitant]
  4. VITAMIN B [Concomitant]
  5. LOVAZA [Concomitant]
  6. MAGNESIUM SULFATE [Concomitant]
  7. CALCIUM (ASCORBIC ACID) [Concomitant]
  8. TYLENOL (CAPLET) [Concomitant]

REACTIONS (12)
  - BLOOD TEST ABNORMAL [None]
  - CHEST PAIN [None]
  - CHILLS [None]
  - HEADACHE [None]
  - MALAISE [None]
  - NASAL CONGESTION [None]
  - PAIN [None]
  - PYREXIA [None]
  - RESTLESSNESS [None]
  - SKIN EXFOLIATION [None]
  - SKIN INJURY [None]
  - TINNITUS [None]
